FAERS Safety Report 9401179 (Version 1)
Quarter: 2013Q3

REPORT INFORMATION
  Report Type: Spontaneous
  Country: JP (occurrence: JP)
  Receive Date: 20130715
  Receipt Date: 20130715
  Transmission Date: 20140515
  Serious: Yes (Hospitalization)
  Sender: FDA-Public Use
  Company Number: JP-ELI_LILLY_AND_COMPANY-JP201307002966

PATIENT
  Age: 72 Year
  Sex: Female

DRUGS (1)
  1. FORTEO [Suspect]
     Dosage: UNK
     Route: 058
     Dates: start: 2012, end: 2012

REACTIONS (2)
  - Gastric ulcer [Unknown]
  - Injection site bruising [Unknown]
